FAERS Safety Report 5169310-7 (Version None)
Quarter: 2006Q4

REPORT INFORMATION
  Report Type: 
  Country: None (occurrence: None)
  Receive Date: 20061211
  Receipt Date: 20060719
  Transmission Date: 20070319
  Serious: Yes (Death, Hospitalization)
  Sender: FDA-Public Use
  Company Number: IT-ELI_LILLY_AND_COMPANY-IT200607004191

PATIENT
  Age: 63 Year
  Sex: Male
  Weight: 95 kg

DRUGS (7)
  1. PEMETREXED [Suspect]
     Indication: PLEURAL MESOTHELIOMA
     Dosage: 950 MG, OTHER
     Route: 042
     Dates: start: 20060107, end: 20060217
  2. CISPLATIN [Suspect]
     Indication: PLEURAL MESOTHELIOMA
     Dosage: 40 MG, UNK
     Route: 042
     Dates: start: 20060107, end: 20060217
  3. *RADIATION [Suspect]
     Indication: PLEURAL MESOTHELIOMA
     Dosage: UNK, UNK
     Dates: start: 20060522, end: 20060710
  4. TORADOL [Concomitant]
     Indication: PROPHYLAXIS
     Dates: start: 20060418
  5. MEPRAL [Concomitant]
     Indication: PROPHYLAXIS
     Dates: start: 20060317
  6. CLEXANE [Concomitant]
     Indication: PROPHYLAXIS
     Dates: start: 20060327
  7. FERROGRAD [Concomitant]
     Indication: ANAEMIA
     Dates: start: 20060418

REACTIONS (26)
  - ACTIVATED PARTIAL THROMBOPLASTIN TIME PROLONGED [None]
  - ALANINE AMINOTRANSFERASE INCREASED [None]
  - ASPARTATE AMINOTRANSFERASE INCREASED [None]
  - BLOOD AMYLASE INCREASED [None]
  - BLOOD BILIRUBIN INCREASED [None]
  - BLOOD CALCIUM DECREASED [None]
  - BLOOD CHOLINESTERASE DECREASED [None]
  - BLOOD FIBRINOGEN INCREASED [None]
  - BLOOD LACTATE DEHYDROGENASE INCREASED [None]
  - BLOOD POTASSIUM INCREASED [None]
  - BRONCHIAL FISTULA [None]
  - EMPHYSEMA [None]
  - EMPYEMA [None]
  - HAEMATOCRIT DECREASED [None]
  - HAEMOGLOBIN DECREASED [None]
  - HYDROPNEUMOTHORAX [None]
  - INTERNATIONAL NORMALISED RATIO INCREASED [None]
  - LYMPHOCYTE PERCENTAGE DECREASED [None]
  - MONOCYTE PERCENTAGE DECREASED [None]
  - NEUTROPHIL PERCENTAGE INCREASED [None]
  - PLATELET COUNT DECREASED [None]
  - PLEURAL DISORDER [None]
  - PROTEIN TOTAL DECREASED [None]
  - RED BLOOD CELL COUNT DECREASED [None]
  - RED CELL DISTRIBUTION WIDTH INCREASED [None]
  - SUBCUTANEOUS EMPHYSEMA [None]
